FAERS Safety Report 19575575 (Version 1)
Quarter: 2021Q3

REPORT INFORMATION
  Report Type: Spontaneous
  Country: SI (occurrence: SI)
  Receive Date: 20210719
  Receipt Date: 20210719
  Transmission Date: 20211014
  Serious: Yes (Other)
  Sender: FDA-Public Use
  Company Number: SI-UCBSA-2021033293

PATIENT
  Age: 0 Year
  Sex: Female

DRUGS (5)
  1. SERTRALINE [Suspect]
     Active Substance: SERTRALINE HYDROCHLORIDE
     Indication: DEPRESSION
     Dosage: 50 MILLIGRAM DAILY
     Route: 064
     Dates: start: 20200717, end: 20200811
  2. LEVETIRACETAM. [Suspect]
     Active Substance: LEVETIRACETAM
     Indication: EPILEPSY
     Dosage: 1000 MILLIGRAM DAILY
     Route: 064
     Dates: start: 20200717
  3. KAPECITABIN TEVA [Suspect]
     Active Substance: CAPECITABINE
     Indication: BREAST CANCER METASTATIC
     Dosage: 3000 MILLIGRAM DAILY; 1500 MG/12 HOURS;
     Route: 064
     Dates: start: 20200811, end: 20201120
  4. PANTOPRAZOLE [Suspect]
     Active Substance: PANTOPRAZOLE
     Indication: GASTROINTESTINAL DISORDER PROPHYLAXIS
     Dosage: 40 MILLIGRAM DAILY
     Route: 064
     Dates: start: 20200731
  5. DEXAMETHASONE. [Suspect]
     Active Substance: DEXAMETHASONE
     Indication: BRAIN OEDEMA
     Dosage: 8 MILLIGRAM DAILY
     Route: 064
     Dates: start: 20200717, end: 20200811

REACTIONS (3)
  - Maternal exposure during pregnancy [Unknown]
  - Foetal growth restriction [Unknown]
  - Premature baby [Unknown]

NARRATIVE: CASE EVENT DATE: 20200717
